FAERS Safety Report 4994432-0 (Version None)
Quarter: 2006Q2

REPORT INFORMATION
  Report Type: 
  Country: None (occurrence: None)
  Receive Date: 20060503
  Receipt Date: 20060420
  Transmission Date: 20061013
  Serious: Yes (Other)
  Sender: FDA-Public Use
  Company Number: 2006049896

PATIENT
  Age: 52 Year
  Sex: Female
  Weight: 96 kg

DRUGS (4)
  1. SULPERAZONE (SULBACTAM, CEFOPERAZONE) [Suspect]
     Indication: THROMBOPHLEBITIS
     Dosage: 1 GRAM, INTRAVENOUS
     Route: 042
     Dates: start: 20060403, end: 20060403
  2. BEROTEC [Suspect]
     Indication: ASTHMA
     Dosage: INHALATION
     Route: 055
     Dates: start: 20060403
  3. QVAR (BECLOMETASONE DIPROPIONATE) [Concomitant]
  4. HOKUNALIN (TULOBUTEROL HYDROCHLORIDE) [Concomitant]

REACTIONS (7)
  - ASTHMA [None]
  - BLOOD PRESSURE DECREASED [None]
  - CONDITION AGGRAVATED [None]
  - DRUG HYPERSENSITIVITY [None]
  - OLIGURIA [None]
  - SHOCK [None]
  - VOMITING [None]
